FAERS Safety Report 6741358-8 (Version None)
Quarter: 2010Q2

REPORT INFORMATION
  Report Type: 
  Country: None (occurrence: None)
  Receive Date: 20100526
  Receipt Date: 20100518
  Transmission Date: 20101027
  Serious: Yes (Life-Threatening, Hospitalization)
  Sender: FDA-Public Use
  Company Number: JP-PFIZER INC-2010059544

PATIENT
  Age: 62 Year
  Sex: Male
  Weight: 81 kg

DRUGS (6)
  1. SUNITINIB MALATE [Suspect]
     Indication: RENAL CANCER
     Dosage: 50 MG, 1X/DAY
     Route: 048
     Dates: start: 20091130, end: 20100405
  2. SORAFENIB TOSILATE [Suspect]
     Indication: METASTASES TO LUNG
     Dosage: 400 MG, 2X/DAY
     Route: 048
     Dates: start: 20080606, end: 20091129
  3. LOXONIN [Concomitant]
     Indication: PALMAR-PLANTAR ERYTHRODYSAESTHESIA SYNDROME
     Dosage: UNK
     Route: 048
     Dates: start: 20081009, end: 20100405
  4. OLMESARTAN MEDOXOMIL [Concomitant]
     Indication: HYPERTENSION
     Dosage: UNK
     Route: 048
     Dates: start: 20090115, end: 20100406
  5. NORVASC [Concomitant]
     Indication: HYPERTENSION
     Dosage: UNK
     Route: 048
     Dates: start: 20090409, end: 20100405
  6. FAMOTIDINE [Concomitant]
     Indication: GASTRITIS
     Dosage: UNK
     Dates: start: 20091028, end: 20100405

REACTIONS (2)
  - GASTROINTESTINAL AMYLOIDOSIS [None]
  - RENAL FAILURE [None]
